FAERS Safety Report 23105667 (Version 1)
Quarter: 2023Q4

REPORT INFORMATION
  Report Type: Spontaneous
  Country: US (occurrence: None)
  Receive Date: 20231023
  Receipt Date: 20231023
  Transmission Date: 20240110
  Serious: Yes (Hospitalization)
  Sender: FDA-Public Use
  Company Number: None

PATIENT
  Age: 58 Year
  Sex: Male
  Weight: 83 kg

DRUGS (1)
  1. SELEGILINE HYDROCHLORIDE [Suspect]
     Active Substance: SELEGILINE HYDROCHLORIDE
     Dates: start: 20220722, end: 20220821

REACTIONS (5)
  - Dyskinesia [None]
  - Dystonia [None]
  - Fall [None]
  - Hallucination, visual [None]
  - Hallucination [None]

NARRATIVE: CASE EVENT DATE: 20220819
